FAERS Safety Report 26098516 (Version 1)
Quarter: 2025Q4

REPORT INFORMATION
  Report Type: Spontaneous
  Country: EU (occurrence: EU)
  Receive Date: 20251127
  Receipt Date: 20251127
  Transmission Date: 20260117
  Serious: Yes (Hospitalization)
  Sender: ELI LILLY AND COMPANY
  Company Number: None

PATIENT
  Age: 58 Year
  Sex: Female
  Weight: 138 kg

DRUGS (2)
  1. MOUNJARO [Suspect]
     Active Substance: TIRZEPATIDE
     Indication: Hypoglycaemia
     Dosage: 12.5 MG, WEEKLY (1/W)
     Route: 065
     Dates: start: 20231114, end: 20251106
  2. MOUNJARO [Suspect]
     Active Substance: TIRZEPATIDE
     Indication: Weight control

REACTIONS (8)
  - Lymphoedema [Not Recovered/Not Resolved]
  - Phlebitis [Not Recovered/Not Resolved]
  - Cellulitis [Not Recovered/Not Resolved]
  - Fluid retention [Recovering/Resolving]
  - Weight increased [Not Recovered/Not Resolved]
  - Migraine [Recovering/Resolving]
  - Increased appetite [Recovered/Resolved]
  - Food craving [Recovered/Resolved]
